FAERS Safety Report 8954437 (Version 1)
Quarter: 2012Q4

REPORT INFORMATION
  Report Type: 
  Country: US (occurrence: US)
  Receive Date: 20121210
  Receipt Date: 20121210
  Transmission Date: 20130627
  Serious: No
  Sender: FDA-Public Use
  Company Number: US-009507513-1212USA002035

PATIENT
  Sex: Male
  Weight: 81.63 kg

DRUGS (4)
  1. RIBAVIRIN [Suspect]
     Dosage: 5 DF, qd
     Route: 048
  2. PEGINTRON [Suspect]
     Dosage: Kit, 120 MCG
  3. XANAX [Concomitant]
     Dosage: 0.5 mg
  4. LORTAB [Concomitant]
     Dosage: 5 mg

REACTIONS (2)
  - Fatigue [Unknown]
  - Feeling abnormal [Unknown]
